FAERS Safety Report 5053339-3 (Version None)
Quarter: 2006Q2

REPORT INFORMATION
  Report Type: 
  Country: None (occurrence: None)
  Receive Date: 20060614
  Receipt Date: 20060309
  Transmission Date: 20061013
  Serious: Yes (Other)
  Sender: FDA-Public Use
  Company Number: 439901

PATIENT
  Age: 42 Year
  Sex: Female

DRUGS (5)
  1. BONIVA [Suspect]
     Indication: DRUG USE FOR UNKNOWN INDICATION
     Dosage: 150 MG 1 PER MONTH ORAL
     Route: 048
     Dates: start: 20051115
  2. ADVAIR DISKUS 100/50 [Concomitant]
  3. FLONASE [Concomitant]
  4. IMITREX [Concomitant]
  5. AMERGE [Concomitant]

REACTIONS (1)
  - NIGHTMARE [None]
